FAERS Safety Report 7273546-9 (Version None)
Quarter: 2011Q1

REPORT INFORMATION
  Report Type: 
  Country: None (occurrence: None)
  Receive Date: 20110203
  Receipt Date: 20100817
  Transmission Date: 20110831
  Serious: No
  Sender: FDA-Public Use
  Company Number: US-ABBOTT-10P-163-0664333-00

PATIENT
  Sex: Male
  Weight: 106.69 kg

DRUGS (5)
  1. SYNTHROID [Suspect]
     Indication: HYPOTHYROIDISM
     Dates: end: 20100201
  2. UNKNOWN BLOOD PRESSURE MEDICATION [Concomitant]
     Indication: PRODUCT USED FOR UNKNOWN INDICATION
  3. TESTIM [Suspect]
     Route: 062
     Dates: start: 20100201
  4. TESTIM [Suspect]
     Indication: BLOOD TESTOSTERONE
     Route: 062
     Dates: start: 20070101
  5. SYNTHROID [Suspect]
     Dates: start: 20100201

REACTIONS (2)
  - TRI-IODOTHYRONINE DECREASED [None]
  - BLOOD TESTOSTERONE DECREASED [None]
